FAERS Safety Report 20897371 (Version 3)
Quarter: 2022Q3

REPORT INFORMATION
  Report Type: Spontaneous
  Country: BR (occurrence: BR)
  Receive Date: 20220531
  Receipt Date: 20220921
  Transmission Date: 20221027
  Serious: Yes (Hospitalization, Other)
  Sender: FDA-Public Use
  Company Number: BR-009507513-2205BRA008276

PATIENT
  Age: 63 Year
  Sex: Female
  Weight: 41.55 kg

DRUGS (8)
  1. KEYTRUDA [Suspect]
     Active Substance: PEMBROLIZUMAB
     Indication: Lung carcinoma cell type unspecified stage IV
     Dosage: 200 MG, EVERY 21 DAYS
     Route: 042
     Dates: start: 20210927, end: 20211018
  2. KEYTRUDA [Suspect]
     Active Substance: PEMBROLIZUMAB
     Dosage: 21-DAY CYCLE INTERVAL
     Dates: start: 202111, end: 202111
  3. PEMETREXED DISODIUM [Concomitant]
     Active Substance: PEMETREXED DISODIUM
     Dosage: 500 MILLIGRAM/SQ. METER, CYCLICAL
     Dates: start: 20210929, end: 20211010
  4. PEMETREXED DISODIUM [Concomitant]
     Active Substance: PEMETREXED DISODIUM
     Dosage: UNK
     Dates: start: 202111, end: 202111
  5. CARBOPLATIN [Concomitant]
     Active Substance: CARBOPLATIN
     Dosage: 5 AUC
     Dates: start: 20210927, end: 20211018
  6. CARBOPLATIN [Concomitant]
     Active Substance: CARBOPLATIN
     Dosage: UNK
     Dates: start: 202111, end: 202111
  7. DEXAMETHASONE [Concomitant]
     Active Substance: DEXAMETHASONE
  8. ONDANSETRON HYDROCHLORIDE [Concomitant]
     Active Substance: ONDANSETRON HYDROCHLORIDE
     Dosage: DAY 1 OF EVERY CYCLE (PRE-CHEMOTHERAPY)
     Route: 042
     Dates: start: 20210927

REACTIONS (6)
  - Immune-mediated enterocolitis [Recovered/Resolved]
  - Dehydration [Recovered/Resolved]
  - Pyrexia [Recovered/Resolved]
  - Weight decreased [Recovered/Resolved]
  - General physical health deterioration [Recovered/Resolved]
  - Product use in unapproved indication [Unknown]

NARRATIVE: CASE EVENT DATE: 20210101
